FAERS Safety Report 6626660-2 (Version None)
Quarter: 2010Q1

REPORT INFORMATION
  Report Type: 
  Country: None (occurrence: None)
  Receive Date: 20100305
  Receipt Date: 20100223
  Transmission Date: 20100710
  Serious: Yes (Hospitalization, Other)
  Sender: FDA-Public Use
  Company Number: VAL_00382_2010

PATIENT
  Sex: Female

DRUGS (6)
  1. ROCALTROL [Suspect]
     Indication: RENAL FAILURE CHRONIC
     Dosage: 0.25 UG QD ORAL
     Route: 048
     Dates: start: 20090101, end: 20091023
  2. CALCIUM SANDOZ /01725101/ (CALCIUM SANDOZ-CALCIUM CARBONATE/ CALCIUM G [Suspect]
     Indication: RENAL FAILURE CHRONIC
     Dosage: 1 DF QD ORAL
     Route: 048
     Dates: start: 20090101, end: 20091023
  3. LASIX [Concomitant]
  4. TRIATEC /00885601/ [Concomitant]
  5. LANSOX [Concomitant]
  6. ARANESP [Concomitant]

REACTIONS (4)
  - BLOOD CREATINE INCREASED [None]
  - BLOOD UREA INCREASED [None]
  - CONDUCT DISORDER [None]
  - HYPERCALCAEMIA [None]
